FAERS Safety Report 9575624 (Version 1)
Quarter: 2013Q4

REPORT INFORMATION
  Report Type: Spontaneous
  Country: US (occurrence: US)
  Receive Date: 20131001
  Receipt Date: 20131001
  Transmission Date: 20140711
  Serious: No
  Sender: FDA-Public Use
  Company Number: US-AMGEN-USASP2012083639

PATIENT
  Sex: Female
  Weight: 86.17 kg

DRUGS (5)
  1. ENBREL [Suspect]
     Indication: RHEUMATOID ARTHRITIS
     Dosage: 50 MG, QWK
     Route: 058
  2. HUMIRA [Concomitant]
     Dosage: 40 MG, UNK
  3. NABUMETONE [Concomitant]
     Dosage: 500 MG, UNK
  4. TYLENOL                            /00020001/ [Concomitant]
     Dosage: 325 MG, UNK
  5. KENALOG-10 [Concomitant]
     Dosage: 10 MG, UNK

REACTIONS (2)
  - Blood test abnormal [Unknown]
  - Drug resistance [Unknown]
